FAERS Safety Report 9516926 (Version 1)
Quarter: 2013Q1

REPORT INFORMATION
  Report Type: Spontaneous
  Country: US (occurrence: None)
  Receive Date: 20130305
  Receipt Date: 20130305
  Transmission Date: 20140127
  Serious: Yes (Hospitalization)
  Sender: FDA-Public Use
  Company Number: 163-21880-12081114

PATIENT
  Age: 69 Year
  Sex: Male
  Weight: 90.72 kg

DRUGS (9)
  1. REVLIMID [Suspect]
     Indication: PLASMA CELL MYELOMA
     Dosage: 5 MG, 21 IN 21 D, PO
     Route: 048
     Dates: start: 20120620
  2. LORATADINE (LORATADINE) (UNKNOWN) [Concomitant]
  3. RENVELA (SEVELAMER CARBONATE) (UNKNOWN) [Concomitant]
  4. BENZONATATE (BENZONATATE) (UNKNOWN) [Concomitant]
  5. PROTONIX (UNKNOWN) [Concomitant]
  6. SIMVASTATIN [Concomitant]
  7. DECADRON [Concomitant]
  8. CYTOXAN (CYCLOPHOSPHAMIDE) (UNKNOWN) [Concomitant]
  9. VELCADE (UNKNOWN) [Concomitant]

REACTIONS (1)
  - Gastrointestinal haemorrhage [None]
